FAERS Safety Report 26105557 (Version 1)
Quarter: 2025Q4

REPORT INFORMATION
  Report Type: Spontaneous
  Country: EU (occurrence: EU)
  Receive Date: 20251201
  Receipt Date: 20251201
  Transmission Date: 20260117
  Serious: Yes (Death, Other)
  Sender: BAXTER
  Company Number: EU-BAXTER-2025BAX024623

PATIENT
  Age: 6 Year
  Sex: Female

DRUGS (1)
  1. PROPOFOL [Suspect]
     Active Substance: PROPOFOL
     Indication: Sedative therapy
     Dosage: QUANTITY: 1EA
     Route: 065
     Dates: end: 20251120

REACTIONS (2)
  - Death [Fatal]
  - Product administered from unauthorised provider [Unknown]

NARRATIVE: CASE EVENT DATE: 20251120
